FAERS Safety Report 7629686-5 (Version None)
Quarter: 2011Q3

REPORT INFORMATION
  Report Type: 
  Country: None (occurrence: None)
  Receive Date: 20110722
  Receipt Date: 20110713
  Transmission Date: 20111222
  Serious: Yes (Death, Hospitalization)
  Sender: FDA-Public Use
  Company Number: JP-ROCHE-790099

PATIENT
  Age: 60 Year
  Sex: Female

DRUGS (9)
  1. METRONIDAZOLE [Concomitant]
     Dosage: DOSAGE IS UNCERTAIN.
     Route: 003
  2. HERCEPTIN [Suspect]
     Indication: BREAST CANCER METASTATIC
     Route: 041
  3. VINORELBINE TARTRATE [Suspect]
     Indication: BREAST CANCER METASTATIC
     Dosage: DOSAGE IS UNCERTAIN
     Route: 041
  4. METRONIDAZOLE [Concomitant]
     Route: 048
  5. ZOLEDRONIC ACID [Concomitant]
     Dosage: DOSAGE IS UNCERTAIN.
     Route: 041
  6. CADEXOMER-IODINE [Concomitant]
     Dosage: DOSAGE IS UNCERTAIN.
     Route: 003
  7. METRONIDAZOLE [Concomitant]
     Dosage: DOSAGE IS UNCERTAIN.
     Route: 048
  8. METRONIDAZOLE [Concomitant]
     Route: 048
  9. METRONIDAZOLE [Concomitant]
     Route: 048

REACTIONS (3)
  - SKIN ULCER HAEMORRHAGE [None]
  - WHITE BLOOD CELL COUNT DECREASED [None]
  - DISEASE PROGRESSION [None]
